FAERS Safety Report 7138775-3 (Version None)
Quarter: 2010Q4

REPORT INFORMATION
  Report Type: 
  Country: None (occurrence: None)
  Receive Date: 20101202
  Receipt Date: 20101202
  Transmission Date: 20110411
  Serious: Yes (Hospitalization)
  Sender: FDA-Public Use
  Company Number: None

PATIENT
  Age: 60 Year
  Sex: Male
  Weight: 75 kg

DRUGS (1)
  1. AZITHROMYCIN [Suspect]
     Dosage: 250 MG EVERY DAY PO
     Route: 048
     Dates: start: 20100703, end: 20100705

REACTIONS (1)
  - ELECTROCARDIOGRAM ABNORMAL [None]
